FAERS Safety Report 8889471 (Version 2)
Quarter: 2013Q1

REPORT INFORMATION
  Report Type: Spontaneous
  Country: AU (occurrence: None)
  Receive Date: 20121031
  Receipt Date: 20130221
  Transmission Date: 20140127
  Serious: Yes (Hospitalization)
  Sender: FDA-Public Use
  Company Number: FK201203155

PATIENT
  Age: 56 Year
  Sex: Female

DRUGS (5)
  1. VALPROATE (MANUFACTURER UNKNOWN) (VALPROATE SODIUM) (VALPROATE SODIUM) [Suspect]
     Indication: CONVULSION PROPHYLAXIS
     Dosage: 300 MG, EVERY MORNING
  2. TOPIRAMATE (TOPIRAMATE) [Suspect]
     Indication: CONVULSION PROPHYLAXIS
  3. MEROPENEM [Suspect]
     Indication: PRODUCT USED FOR UNKNOWN INDICATION
     Route: 042
  4. CEFTRIAXONE (CEFTRIAXONE) [Concomitant]
  5. METRONIDAZOLE (METRONIDAZOLE) [Concomitant]

REACTIONS (8)
  - Depressed level of consciousness [None]
  - Grand mal convulsion [None]
  - Drug interaction [None]
  - Hypotension [None]
  - Pyrexia [None]
  - Sepsis [None]
  - Depressed level of consciousness [None]
  - Wound infection staphylococcal [None]
